FAERS Safety Report 8377721-1 (Version None)
Quarter: 2012Q2

REPORT INFORMATION
  Report Type: 
  Country: None (occurrence: None)
  Receive Date: 20120522
  Receipt Date: 20120514
  Transmission Date: 20120825
  Serious: Yes (Disabling)
  Sender: FDA-Public Use
  Company Number: JP-GLAXOSMITHKLINE-B0776753A

PATIENT
  Sex: Male
  Weight: 66 kg

DRUGS (2)
  1. PROMACTA [Suspect]
     Indication: IDIOPATHIC THROMBOCYTOPENIC PURPURA
     Dosage: 12.5MG PER DAY
     Route: 048
     Dates: start: 20111216, end: 20120119
  2. LOXONIN [Concomitant]
     Indication: BACK PAIN
     Dosage: 100MG PER DAY
     Route: 062
     Dates: end: 20120118

REACTIONS (1)
  - CEREBRAL INFARCTION [None]
